FAERS Safety Report 7727214-7 (Version None)
Quarter: 2011Q3

REPORT INFORMATION
  Report Type: 
  Country: None (occurrence: None)
  Receive Date: 20110831
  Receipt Date: 20110816
  Transmission Date: 20111222
  Serious: Yes (Death, Other)
  Sender: FDA-Public Use
  Company Number: 2011MA012007

PATIENT
  Age: 47 Year
  Sex: Female

DRUGS (5)
  1. CYCLOPHOSPHAMIDE [Suspect]
     Indication: BREAST MASS
     Dosage: 4 CYCLES OVER 4 MONTHS
     Dates: start: 20070801
  2. PACLITAXEL [Suspect]
     Indication: BREAST MASS
     Dosage: 4 CYCLES
     Dates: start: 20070801
  3. FLUOROURACIL [Suspect]
     Indication: BREAST MASS
     Dosage: 4 CYCLES OVER 4 MONTHS
     Dates: start: 20070801
  4. EPIRUBICIN HYDROCHLORIDE [Suspect]
     Indication: BREAST MASS
     Dosage: 4 CYCLES OVER 4 MONTHS
     Dates: start: 20070801
  5. TAMOXIFEN CITRATE [Suspect]
     Indication: BREAST MASS
     Dosage: PO
     Route: 048

REACTIONS (1)
  - MYELODYSPLASTIC SYNDROME [None]
